FAERS Safety Report 7998064-1 (Version None)
Quarter: 2011Q4

REPORT INFORMATION
  Report Type: 
  Country: None (occurrence: None)
  Receive Date: 20111221
  Receipt Date: 20101229
  Transmission Date: 20120403
  Serious: No
  Sender: FDA-Public Use
  Company Number: US-GLAXOSMITHKLINE-A0902024A

PATIENT
  Age: 66 Year
  Sex: Female

DRUGS (3)
  1. VITAMIN TAB [Concomitant]
  2. HYDROXYCHLOROQUINE SULFATE [Concomitant]
  3. LOVAZA [Suspect]
     Indication: PROPHYLAXIS
     Dosage: 1G TWICE PER DAY
     Route: 048
     Dates: start: 20101001, end: 20101208

REACTIONS (3)
  - NAUSEA [None]
  - DYSPEPSIA [None]
  - DYSGEUSIA [None]
